FAERS Safety Report 4413978-7 (Version None)
Quarter: 2004Q3

REPORT INFORMATION
  Report Type: 
  Country: None (occurrence: None)
  Receive Date: 20040728
  Receipt Date: 20040713
  Transmission Date: 20050211
  Serious: Yes (Other)
  Sender: FDA-Public Use
  Company Number: 2004-0007264

PATIENT
  Age: 40 Year
  Sex: Male
  Weight: 51 kg

DRUGS (4)
  1. VIREAD [Suspect]
     Indication: HIV INFECTION
     Dosage: 300  MG, 1 IN 1 D, ORAL
     Route: 048
     Dates: start: 20020501, end: 20040630
  2. KALETRA [Concomitant]
  3. VIDEX [Concomitant]
  4. BACTRIM [Concomitant]

REACTIONS (4)
  - CREATININE RENAL CLEARANCE DECREASED [None]
  - GLUCOSE URINE PRESENT [None]
  - HYPOGLYCAEMIA [None]
  - WEIGHT DECREASED [None]
